FAERS Safety Report 10188137 (Version 1)
Quarter: 2014Q2

REPORT INFORMATION
  Report Type: Spontaneous
  Country: US (occurrence: None)
  Receive Date: 20140521
  Receipt Date: 20140521
  Transmission Date: 20141212
  Serious: Yes (Other)
  Sender: FDA-Public Use
  Company Number: None

PATIENT
  Age: 80 Year
  Sex: Male
  Weight: 83.92 kg

DRUGS (1)
  1. TOVIAZ [Suspect]
     Indication: URINARY INCONTINENCE
     Dates: start: 20140403, end: 20140424

REACTIONS (5)
  - Diplopia [None]
  - Dysphonia [None]
  - Dry mouth [None]
  - Fatigue [None]
  - Vision blurred [None]
